FAERS Safety Report 6434908-2 (Version None)
Quarter: 2009Q4

REPORT INFORMATION
  Report Type: 
  Country: None (occurrence: None)
  Receive Date: 20091110
  Receipt Date: 20091105
  Transmission Date: 20100525
  Serious: Yes (Hospitalization)
  Sender: FDA-Public Use
  Company Number: BE-BRISTOL-MYERS SQUIBB COMPANY-14808919

PATIENT
  Age: 61 Year
  Sex: Male

DRUGS (4)
  1. CETUXIMAB [Suspect]
     Indication: HEAD AND NECK CANCER
     Dosage: RECENT INFUSION ON 28SEP2009
     Route: 042
     Dates: start: 20090720
  2. CISPLATIN [Suspect]
     Indication: HEAD AND NECK CANCER
     Dosage: RECENT INFUSION ON 21SEP2009
     Route: 042
     Dates: start: 20090720
  3. TAXOTERE [Suspect]
     Indication: HEAD AND NECK CANCER
     Dosage: RECENT INFUSION ON 21SEP2009
     Route: 042
     Dates: start: 20090720
  4. FLUOROURACIL [Suspect]
     Indication: HEAD AND NECK CANCER
     Dosage: RECENT INFUSION ON 21SEP2009, RECEIVED 6665.85 OVER 5 DAYS
     Route: 042
     Dates: start: 20090720

REACTIONS (1)
  - DYSPHAGIA [None]
